FAERS Safety Report 25476876 (Version 2)
Quarter: 2025Q4

REPORT INFORMATION
  Report Type: Spontaneous
  Country: US (occurrence: US)
  Receive Date: 20250625
  Receipt Date: 20251124
  Transmission Date: 20260117
  Serious: No
  Sender: BAXTER
  Company Number: US-BAXTER-2025BAX017156

PATIENT
  Sex: Female

DRUGS (3)
  1. ZOSYN [Suspect]
     Active Substance: PIPERACILLIN SODIUM\TAZOBACTAM SODIUM
     Indication: Antibiotic prophylaxis
     Dosage: UNK
     Route: 042
  2. DUPIXENT [Suspect]
     Active Substance: DUPILUMAB
     Indication: Asthma
     Dosage: 200 MG QOW (DELIVERED VIA DUPIXENT SINGLE DOSE PREFILLED PEN), STRENGTH UNKNOWN
     Route: 058
     Dates: start: 20230426
  3. ALBUTEROL [Concomitant]
     Active Substance: ALBUTEROL
     Dosage: UNK
     Route: 065

REACTIONS (3)
  - Drug hypersensitivity [Unknown]
  - Rash [Unknown]
  - Intercepted product storage error [Unknown]
